FAERS Safety Report 8819724 (Version 2)
Quarter: 2014Q3

REPORT INFORMATION
  Report Type: Report from Study
  Country: US (occurrence: US)
  Receive Date: 20121001
  Receipt Date: 20140917
  Transmission Date: 20150326
  Serious: Yes (Other)
  Sender: FDA-Public Use
  Company Number: US-ROCHE-1129875

PATIENT
  Sex: Female
  Weight: 61.29 kg

DRUGS (5)
  1. HERCEPTIN [Suspect]
     Active Substance: TRASTUZUMAB
     Indication: BREAST CANCER
     Dosage: LOADING DOSE
     Route: 042
     Dates: start: 19981217, end: 19981217
  2. COUMADIN [Concomitant]
     Active Substance: WARFARIN SODIUM
  3. LORAZEPAM. [Concomitant]
     Active Substance: LORAZEPAM
  4. PAMIDRONATE DISODIUM. [Concomitant]
     Active Substance: PAMIDRONATE DISODIUM
  5. HERCEPTIN [Suspect]
     Active Substance: TRASTUZUMAB
     Dosage: MAINTENANCE DOSE
     Route: 042

REACTIONS (22)
  - Vomiting [Unknown]
  - Dysphagia [Unknown]
  - Dyspnoea [Unknown]
  - Cardiac tamponade [Unknown]
  - Chills [Unknown]
  - Disease progression [Unknown]
  - Lymphadenopathy [Unknown]
  - Asthenia [Unknown]
  - Retching [Unknown]
  - Constipation [Unknown]
  - Decreased appetite [Unknown]
  - Nausea [Unknown]
  - Pleural effusion [Unknown]
  - Pruritus [Unknown]
  - Hypersomnia [Unknown]
  - Poor quality sleep [Unknown]
  - Heart sounds abnormal [Unknown]
  - Sputum abnormal [Unknown]
  - Dyspnoea exertional [Unknown]
  - Productive cough [Unknown]
  - Nasopharyngitis [Unknown]
  - Breath sounds abnormal [Unknown]
